FAERS Safety Report 9487101 (Version 3)
Quarter: 2013Q4

REPORT INFORMATION
  Report Type: Spontaneous
  Country: US (occurrence: US)
  Receive Date: 20130829
  Receipt Date: 20131106
  Transmission Date: 20140711
  Serious: Yes (Other)
  Sender: FDA-Public Use
  Company Number: US-PFIZER INC-2013236064

PATIENT
  Age: 64 Year
  Sex: Female
  Weight: 60.3 kg

DRUGS (5)
  1. LEVOTHYROXINE SODIUM [Suspect]
     Dosage: UNK
  2. CALCIUM [Concomitant]
     Dosage: UNK
  3. VITAMIN D SUPPLEMENT [Concomitant]
     Dosage: UNK
  4. LEVOXYL [Concomitant]
     Dosage: 88 UG, 1X/DAY
  5. LOTREL [Concomitant]
     Indication: HYPERTENSION
     Dosage: UNK
     Dates: start: 2003

REACTIONS (3)
  - Aphagia [Unknown]
  - Malaise [Unknown]
  - Activities of daily living impaired [Unknown]
